APPROVED DRUG PRODUCT: CHEMET
Active Ingredient: SUCCIMER
Strength: 100MG
Dosage Form/Route: CAPSULE;ORAL
Application: N019998 | Product #002
Applicant: RECORDATI RARE DISEASES INC
Approved: Jan 30, 1991 | RLD: Yes | RS: Yes | Type: RX